FAERS Safety Report 6333381-2 (Version None)
Quarter: 2009Q3

REPORT INFORMATION
  Report Type: 
  Country: None (occurrence: None)
  Receive Date: 20090828
  Receipt Date: 20090818
  Transmission Date: 20100115
  Serious: Yes (Hospitalization)
  Sender: FDA-Public Use
  Company Number: US-ABBOTT-09P-163-0592165-00

PATIENT
  Sex: Male
  Weight: 81.72 kg

DRUGS (8)
  1. KALETRA [Suspect]
     Indication: HIV INFECTION
     Dates: start: 20070101
  2. INTEFERON [Suspect]
     Indication: HEPATITIS C
     Route: 058
     Dates: start: 20080101
  3. RIBAVIRIN [Suspect]
     Indication: DRUG USE FOR UNKNOWN INDICATION
     Route: 048
     Dates: start: 20080101
  4. TESTOSTERONE PUMP [Concomitant]
     Indication: BLOOD TESTOSTERONE DECREASED
     Dosage: RUB ON BELLY AND LEGS
     Dates: end: 20060101
  5. ZEBREXA [Concomitant]
     Indication: SLEEP DISORDER
  6. TRUVADA [Concomitant]
     Indication: HIV INFECTION
  7. INTERFERON [Concomitant]
     Indication: HEPATITIS C
     Route: 058
     Dates: start: 20080101
  8. RIBAVIRIN [Concomitant]
     Dates: start: 20080101

REACTIONS (8)
  - ANAEMIA [None]
  - COMA [None]
  - DEPRESSION [None]
  - PNEUMONIA [None]
  - RED BLOOD CELL COUNT DECREASED [None]
  - RESPIRATORY RATE DECREASED [None]
  - SUICIDAL IDEATION [None]
  - WHITE BLOOD CELL COUNT DECREASED [None]
